FAERS Safety Report 18777003 (Version 2)
Quarter: 2021Q1

REPORT INFORMATION
  Report Type: Spontaneous
  Country: KZ (occurrence: KZ)
  Receive Date: 20210122
  Receipt Date: 20210302
  Transmission Date: 20210419
  Serious: Yes (Hospitalization)
  Sender: FDA-Public Use
  Company Number: KZ-INSUD PHARMA-2101KZ00039

PATIENT
  Age: 29 Year
  Sex: Female
  Weight: 54 kg

DRUGS (1)
  1. VIDORA [Suspect]
     Active Substance: INDORAMIN HYDROCHLORIDE
     Indication: CONTRACEPTION
     Dosage: 1 DOSAGE FORM, QD
     Route: 048
     Dates: start: 20201218, end: 20201219

REACTIONS (9)
  - Lagophthalmos [Unknown]
  - Facial neuralgia [Unknown]
  - Facial paralysis [Recovering/Resolving]
  - Facial paresis [Not Recovered/Not Resolved]
  - Tinnitus [Unknown]
  - Hypoaesthesia [Unknown]
  - Headache [Unknown]
  - Swelling face [Unknown]
  - Asthenia [Unknown]

NARRATIVE: CASE EVENT DATE: 20201219
